FAERS Safety Report 5830708-2 (Version None)
Quarter: 2008Q3

REPORT INFORMATION
  Report Type: 
  Country: None (occurrence: None)
  Receive Date: 20080801
  Receipt Date: 20071017
  Transmission Date: 20090109
  Serious: Yes (Hospitalization, Other)
  Sender: FDA-Public Use
  Company Number: US-BRISTOL-MYERS SQUIBB COMPANY-13945779

PATIENT
  Age: 58 Year
  Sex: Female
  Weight: 86 kg

DRUGS (13)
  1. COUMADIN [Suspect]
     Dosage: DOSE VARIED BETWEEN 2.5 TO 5 MG DAILY.
     Route: 048
     Dates: start: 20070401
  2. WARFARIN SODIUM [Suspect]
  3. PLAVIX [Concomitant]
  4. METOPROLOL AL [Concomitant]
     Route: 048
  5. LISINOPRIL AND HYDROCHLOROTHIAZIDE [Concomitant]
     Route: 048
  6. LIPITOR [Concomitant]
     Route: 048
  7. ZOLOFT [Concomitant]
     Route: 048
  8. NEXIUM [Concomitant]
     Route: 048
  9. ASPIRIN [Concomitant]
     Route: 048
  10. OXYCODONE HCL [Concomitant]
  11. ALPRAZOLAM [Concomitant]
  12. ALPRAZOLAM [Concomitant]
  13. ESTRADIOL [Concomitant]

REACTIONS (2)
  - COMPARTMENT SYNDROME [None]
  - SENSORY LOSS [None]
